FAERS Safety Report 7753335-9 (Version None)
Quarter: 2011Q3

REPORT INFORMATION
  Report Type: 
  Country: None (occurrence: None)
  Receive Date: 20110915
  Receipt Date: 20110912
  Transmission Date: 20111222
  Serious: Yes (Death)
  Sender: FDA-Public Use
  Company Number: US-B.I. PHARMACEUTICALS,INC./RIDGEFIELD-2011-BP-13414BP

PATIENT
  Sex: Male

DRUGS (11)
  1. LEVOXYL [Concomitant]
     Dosage: 75 MCG
  2. ALLOPURINOL [Concomitant]
     Dosage: 100 MG
  3. AVANDIA [Concomitant]
  4. PRADAXA [Suspect]
     Indication: ATRIAL FLUTTER
  5. LIPITOR [Concomitant]
     Dosage: 40 MG
  6. GLIPIZIDE [Concomitant]
     Dosage: 20 MG
  7. TOPROL-XL [Concomitant]
     Dosage: 200 MG
  8. JANUVIA [Concomitant]
     Dosage: 100 MG
  9. AMIODARONE HCL [Concomitant]
  10. PRADAXA [Suspect]
     Indication: ATRIAL FIBRILLATION
     Dosage: 150 MG
     Dates: start: 20110506, end: 20110509
  11. LISINOPRIL [Concomitant]
     Dosage: 20 MG

REACTIONS (1)
  - DEATH [None]
